FAERS Safety Report 25186485 (Version 1)
Quarter: 2025Q2

REPORT INFORMATION
  Report Type: Spontaneous
  Country: TR (occurrence: TR)
  Receive Date: 20250411
  Receipt Date: 20250411
  Transmission Date: 20250717
  Serious: Yes (Death, Other)
  Sender: AMGEN
  Company Number: TR-AMGEN-TURSP2025065440

PATIENT
  Weight: 2.8 kg

DRUGS (7)
  1. SODIUM PHENYLBUTYRATE [Suspect]
     Active Substance: SODIUM PHENYLBUTYRATE
     Indication: Hyperammonaemia
  2. SODIUM BENZOATE [Concomitant]
     Active Substance: SODIUM BENZOATE
  3. COENZYME Q10 [Concomitant]
     Active Substance: DIETARY SUPPLEMENT\UBIDECARENONE
  4. CARNITINE [Concomitant]
     Active Substance: CARNITINE
  5. BIOTIN [Concomitant]
     Active Substance: BIOTIN
  6. RIBOFLAVIN [Concomitant]
     Active Substance: RIBOFLAVIN
  7. THIAMINE [Concomitant]
     Active Substance: THIAMINE

REACTIONS (10)
  - Sepsis [Fatal]
  - Epilepsy [Unknown]
  - Deafness neurosensory [Unknown]
  - Malnutrition [Unknown]
  - Developmental delay [Unknown]
  - Hypotonia [Unknown]
  - Ventricular hypertrophy [Unknown]
  - Cerebral disorder [Unknown]
  - Drug effective for unapproved indication [Unknown]
  - Off label use [Unknown]
